FAERS Safety Report 20643013 (Version 1)
Quarter: 2022Q1

REPORT INFORMATION
  Report Type: Spontaneous
  Country: US (occurrence: US)
  Receive Date: 20220328
  Receipt Date: 20220328
  Transmission Date: 20220423
  Serious: No
  Sender: FDA-Public Use
  Company Number: US-BRISTOL-MYERS SQUIBB COMPANY-USA-20220304603

PATIENT
  Age: 72 Year
  Sex: Male
  Weight: 66.68 kg

DRUGS (1)
  1. REVLIMID [Suspect]
     Active Substance: LENALIDOMIDE
     Indication: Plasma cell myeloma
     Dosage: FREQ- 10MG BY MOUTH DAILY
     Route: 048

REACTIONS (1)
  - Fatigue [Not Recovered/Not Resolved]
